FAERS Safety Report 13334300 (Version 1)
Quarter: 2017Q1

REPORT INFORMATION
  Report Type: Spontaneous
  Country: FR (occurrence: FR)
  Receive Date: 20170314
  Receipt Date: 20170314
  Transmission Date: 20170428
  Serious: Yes (Life-Threatening, Hospitalization)
  Sender: FDA-Public Use
  Company Number: FR-PFIZER INC-2017058374

PATIENT
  Age: 19 Year
  Sex: Male
  Weight: 68 kg

DRUGS (3)
  1. ADVILMED [Suspect]
     Active Substance: IBUPROFEN
     Indication: RESPIRATORY SYMPTOM
     Dosage: 400 MG, 3X/DAY
     Route: 048
     Dates: start: 20170127
  2. PARACETAMOL [Concomitant]
     Active Substance: ACETAMINOPHEN
     Dosage: UNK
  3. TOPLEXIL (OXOMEMAZINE) [Concomitant]
     Active Substance: OXOMEMAZINE
     Dosage: UNK

REACTIONS (4)
  - Septic shock [Recovered/Resolved]
  - Urticaria [Recovered/Resolved]
  - Anaphylactic shock [Recovered/Resolved]
  - Product use issue [Unknown]

NARRATIVE: CASE EVENT DATE: 20170131
